FAERS Safety Report 8935321 (Version 2)
Quarter: 2012Q4

REPORT INFORMATION
  Report Type: 
  Country: FR (occurrence: FR)
  Receive Date: 20121129
  Receipt Date: 20121206
  Transmission Date: 20130627
  Serious: Yes (Hospitalization, Other)
  Sender: FDA-Public Use
  Company Number: FR-PFIZER INC-2012298792

PATIENT
  Age: 71 Year
  Sex: Female

DRUGS (3)
  1. TRIATEC [Suspect]
     Dosage: UNK
     Route: 048
     Dates: start: 20111011, end: 20111024
  2. COKENZEN [Suspect]
     Dosage: UNK
     Route: 048
     Dates: end: 20111011
  3. LEVOTHYROX [Concomitant]
     Dosage: UNK

REACTIONS (1)
  - Angioedema [Recovered/Resolved]
